FAERS Safety Report 8964501 (Version 2)
Quarter: 2013Q2

REPORT INFORMATION
  Report Type: Report from Study
  Country: JP (occurrence: JP)
  Receive Date: 20121213
  Receipt Date: 20130411
  Transmission Date: 20140414
  Serious: Yes (Death, Life-Threatening, Hospitalization)
  Sender: FDA-Public Use
  Company Number: JP-MERCK-2011SP044541

PATIENT
  Age: 67 Year
  Sex: Female
  Weight: 48 kg

DRUGS (26)
  1. TEMOZOLOMIDE [Suspect]
     Indication: GLIOBLASTOMA MULTIFORME
     Dosage: 75 MG/M2, QD
     Route: 048
     Dates: start: 20061019, end: 20061129
  2. TEMOZOLOMIDE [Suspect]
     Dosage: 150 MG/M2, UNK
     Route: 048
     Dates: start: 20070222, end: 20070226
  3. TEMOZOLOMIDE [Suspect]
     Dosage: 200 MG/M2, ONCE DAILY FOR 5 CONSECUTIVE DAYS PER 28 DAY
     Route: 048
     Dates: start: 20070319, end: 20070323
  4. TEMOZOLOMIDE [Suspect]
     Dosage: 200 MG/M2, ONCE DAILY FOR 5 CONSECUTIVE DAYS PER 28 DAY
     Route: 048
     Dates: start: 20070927, end: 20081222
  5. TEMOZOLOMIDE [Suspect]
     Dosage: 200 MG/M2, ONCE DAILY FOR 5 CONSECUTIVE DAYS PER 28 DAY
     Route: 048
     Dates: start: 20090213, end: 20100831
  6. BAKTAR [Concomitant]
     Indication: ANTIFUNGAL PROPHYLAXIS
     Dosage: UNK
     Route: 048
     Dates: start: 20061107, end: 20061201
  7. BAKTAR [Concomitant]
     Dosage: UNK
     Route: 048
     Dates: start: 20080207
  8. ZOFRAN [Concomitant]
     Indication: PROPHYLAXIS
     Dosage: UNK
     Route: 048
     Dates: start: 20061019
  9. PRIMPERAN [Concomitant]
     Indication: PROPHYLAXIS
     Dosage: UNK
     Route: 048
     Dates: start: 20061023
  10. EXCEGRAN [Concomitant]
     Indication: PROPHYLAXIS
     Dosage: UNK
     Route: 048
     Dates: start: 20060919
  11. GASTER D [Concomitant]
     Indication: PROPHYLAXIS
     Dosage: UNK
     Route: 048
     Dates: start: 20061006
  12. GASTER [Concomitant]
     Indication: PROPHYLAXIS
     Dosage: UNK
     Route: 042
     Dates: start: 20060927, end: 20061004
  13. DANDELION (+) MADDER (+) SENNA (+) YARROW [Concomitant]
     Indication: PROPHYLAXIS
     Route: 048
     Dates: start: 20061222
  14. LEUCON (ADENINE) [Concomitant]
     Indication: PROPHYLAXIS
     Route: 048
  15. MAGMITT [Concomitant]
     Indication: PROPHYLAXIS
     Dosage: UNK
     Route: 048
     Dates: start: 20071109
  16. PREDONINE [Concomitant]
     Dosage: UNK
     Route: 042
     Dates: start: 20060927, end: 20061023
  17. ISOBIDE [Concomitant]
     Dosage: UNK
     Route: 048
     Dates: start: 20071126
  18. ASIAN GINSENG (+) GINGER (+) SICHUAN PEPPER [Concomitant]
     Indication: PROPHYLAXIS
     Route: 048
     Dates: start: 20110302, end: 20110906
  19. BIOFERMIN R [Concomitant]
     Indication: PROPHYLAXIS
     Route: 048
     Dates: start: 20110415, end: 20110906
  20. PROBIOTICS (UNSPECIFIED) [Concomitant]
     Indication: PROPHYLAXIS
     Route: 048
     Dates: start: 20110415, end: 20110906
  21. GRAMALIL [Concomitant]
     Indication: PROPHYLAXIS
     Dosage: UNK
     Route: 048
     Dates: start: 20061002, end: 20061019
  22. CEFAMEZIN [Concomitant]
     Indication: PROPHYLAXIS
     Dosage: UNK
     Route: 042
     Dates: start: 20060927, end: 20060930
  23. ALOSENN (SENNA) [Concomitant]
     Indication: PROPHYLAXIS
     Dosage: UNK
     Route: 048
     Dates: start: 20061222, end: 20071027
  24. PREDONINE [Concomitant]
     Dosage: UNK
     Route: 048
     Dates: start: 20071126
  25. DAI-KENCHU-TO [Concomitant]
     Indication: PROPHYLAXIS
     Dosage: UNK
     Route: 048
     Dates: start: 20110302, end: 20110906
  26. LAC-B [Concomitant]
     Indication: PROPHYLAXIS
     Dosage: UNK
     Route: 048
     Dates: start: 20110415, end: 20110906

REACTIONS (11)
  - Bone marrow failure [Fatal]
  - White blood cell count decreased [Not Recovered/Not Resolved]
  - Red blood cell count decreased [Fatal]
  - Neutrophil count decreased [Recovering/Resolving]
  - Neutrophil count decreased [Recovering/Resolving]
  - White blood cell count decreased [Recovered/Resolved]
  - Platelet count decreased [Recovered/Resolved]
  - Protein total decreased [Not Recovered/Not Resolved]
  - Hepatic function abnormal [Recovering/Resolving]
  - Hepatic function abnormal [Recovering/Resolving]
  - Neutrophil count decreased [Recovered/Resolved]
